FAERS Safety Report 11393452 (Version 4)
Quarter: 2016Q4

REPORT INFORMATION
  Report Type: Report from Study
  Country: CA (occurrence: CA)
  Receive Date: 20150818
  Receipt Date: 20161114
  Transmission Date: 20170206
  Serious: Yes (Hospitalization, Other)
  Sender: FDA-Public Use
  Company Number: CA-GILEAD-2015-0167622

PATIENT
  Age: 28 Year
  Sex: Female

DRUGS (1)
  1. AZTREONAM LYSINE [Suspect]
     Active Substance: AZTREONAM LYSINE
     Indication: CYSTIC FIBROSIS
     Dosage: UNK
     Route: 055

REACTIONS (5)
  - Pulmonary function test decreased [Unknown]
  - Lung disorder [Unknown]
  - Condition aggravated [Unknown]
  - Malaise [Unknown]
  - Off label use [Not Recovered/Not Resolved]
